FAERS Safety Report 4522866-7 (Version None)
Quarter: 2004Q4

REPORT INFORMATION
  Report Type: 
  Country: None (occurrence: None)
  Receive Date: 20041207
  Receipt Date: 20041122
  Transmission Date: 20050328
  Serious: Yes (Hospitalization)
  Sender: FDA-Public Use
  Company Number: 29702

PATIENT
  Age: 26 Year
  Sex: Female

DRUGS (1)
  1. CYCLOGYL [Suspect]
     Indication: CYCLOPLEGIA
     Dosage: OPHT
     Route: 047
     Dates: start: 20041104, end: 20041104

REACTIONS (5)
  - BLOOD CREATINE PHOSPHOKINASE MB INCREASED [None]
  - EOSINOPHIL PERCENTAGE INCREASED [None]
  - LYMPHOCYTE PERCENTAGE INCREASED [None]
  - SENSORY DISTURBANCE [None]
  - SOMNOLENCE [None]
